FAERS Safety Report 15185472 (Version 1)
Quarter: 2018Q3

REPORT INFORMATION
  Report Type: Spontaneous
  Country: IT (occurrence: IT)
  Receive Date: 20180723
  Receipt Date: 20180723
  Transmission Date: 20181010
  Serious: Yes (Hospitalization, Other)
  Sender: FDA-Public Use
  Company Number: IT-SHIRE-IT201827013

PATIENT

DRUGS (3)
  1. GEMCITABINE HYDROCHLORIDE. [Concomitant]
     Active Substance: GEMCITABINE HYDROCHLORIDE
     Indication: NON-HODGKIN^S LYMPHOMA
     Dosage: 1250 MG, UNK
     Dates: start: 20180610, end: 20180610
  2. OXALIPLATIN. [Concomitant]
     Active Substance: OXALIPLATIN
     Indication: NON-HODGKIN^S LYMPHOMA
     Dates: start: 20180610, end: 20180610
  3. ONCASPAR [Suspect]
     Active Substance: PEGASPARGASE
     Indication: B-CELL LYMPHOMA
     Dosage: 2000 DF, UNK
     Route: 042
     Dates: start: 20180610

REACTIONS (3)
  - Pancreatitis acute [Recovering/Resolving]
  - Vomiting [Recovering/Resolving]
  - Abdominal pain [Recovering/Resolving]

NARRATIVE: CASE EVENT DATE: 20180701
